FAERS Safety Report 4676879-5 (Version None)
Quarter: 2005Q2

REPORT INFORMATION
  Report Type: 
  Country: None (occurrence: None)
  Receive Date: 20050527
  Receipt Date: 20050513
  Transmission Date: 20051028
  Serious: Yes (Other)
  Sender: FDA-Public Use
  Company Number: 2005075539

PATIENT
  Sex: Female
  Weight: 90.7194 kg

DRUGS (7)
  1. CELEBREX [Suspect]
     Indication: ARTHRALGIA
     Dosage: 200 MG (100 MG, 2 IN 1 D), ORAL
     Route: 048
  2. CELEBREX [Suspect]
     Indication: INFLAMMATION
     Dosage: 200 MG (100 MG, 2 IN 1 D), ORAL
     Route: 048
  3. BEXTRA [Suspect]
     Indication: ARTHRALGIA
     Dosage: 20 MG (20 MG, 1 IN 1 D), ORAL
     Route: 048
  4. BEXTRA [Suspect]
     Indication: INFLAMMATION
     Dosage: 20 MG (20 MG, 1 IN 1 D), ORAL
     Route: 048
  5. AMLODIPINE BESYLATE [Concomitant]
  6. ATENOLOL [Concomitant]
  7. PROPACET 100 [Concomitant]

REACTIONS (7)
  - ABASIA [None]
  - DIFFICULTY IN WALKING [None]
  - DRUG INEFFECTIVE [None]
  - DYSPEPSIA [None]
  - HIP ARTHROPLASTY [None]
  - IMPAIRED WORK ABILITY [None]
  - MEDICAL DEVICE COMPLICATION [None]
